FAERS Safety Report 13985055 (Version 1)
Quarter: 2017Q3

REPORT INFORMATION
  Report Type: Spontaneous
  Country: BH (occurrence: BH)
  Receive Date: 20170919
  Receipt Date: 20170919
  Transmission Date: 20171128
  Serious: Yes (Other)
  Sender: FDA-Public Use
  Company Number: BH-IMPAX LABORATORIES, INC-2017-IPXL-02701

PATIENT
  Age: 14 Year
  Sex: Female

DRUGS (2)
  1. DOXYCYCLINE HYCLATE DELAYED RELEASE [Suspect]
     Active Substance: DOXYCYCLINE HYCLATE
     Indication: PRODUCT USE IN UNAPPROVED INDICATION
     Dosage: 100 MG, DAILY
     Route: 065
  2. DOXYCYCLINE HYCLATE DELAYED RELEASE [Suspect]
     Active Substance: DOXYCYCLINE HYCLATE
     Indication: OCULAR ROSACEA

REACTIONS (3)
  - Treatment noncompliance [Unknown]
  - Ocular rosacea [Recovered/Resolved]
  - Product use in unapproved indication [Unknown]
